FAERS Safety Report 17852641 (Version 2)
Quarter: 2020Q2

REPORT INFORMATION
  Report Type: Spontaneous
  Country: US (occurrence: US)
  Receive Date: 20200603
  Receipt Date: 20200608
  Transmission Date: 20200714
  Serious: Yes (Hospitalization, Other)
  Sender: FDA-Public Use
  Company Number: US-ALEMBIC PHARMACUETICALS LIMITED-2020SCAL000240

PATIENT

DRUGS (3)
  1. CLONIDINE HYDROCHLORIDE. [Suspect]
     Active Substance: CLONIDINE HYDROCHLORIDE
     Indication: AUTISM SPECTRUM DISORDER
     Dosage: 2.2 MILLILITER OF 0.09 MG/ML NIGHTLY
  2. CLONIDINE HYDROCHLORIDE. [Suspect]
     Active Substance: CLONIDINE HYDROCHLORIDE
     Dosage: 1.58 MILLIGRAM
  3. BUSPIRONE [Suspect]
     Active Substance: BUSPIRONE HYDROCHLORIDE
     Indication: AUTISM SPECTRUM DISORDER
     Dosage: 5 MG/ML, 10.5 ML OF 5 MG/ML EACH MORNING

REACTIONS (9)
  - Hypotension [Unknown]
  - Mental status changes [Recovered/Resolved]
  - Product preparation error [Unknown]
  - Capillary nail refill test abnormal [Unknown]
  - Somnolence [Unknown]
  - Bradycardia [Recovered/Resolved]
  - Overdose [Unknown]
  - Sedation [Unknown]
  - Toxicity to various agents [Recovered/Resolved]
